FAERS Safety Report 4546449-8 (Version None)
Quarter: 2005Q1

REPORT INFORMATION
  Report Type: 
  Country: None (occurrence: None)
  Receive Date: 20050103
  Receipt Date: 20041217
  Transmission Date: 20050727
  Serious: Yes (Hospitalization, Other)
  Sender: FDA-Public Use
  Company Number: CIP04002740

PATIENT
  Age: 63 Year
  Sex: Female

DRUGS (4)
  1. ACTONEL [Suspect]
     Indication: OSTEOPOROSIS
     Dosage: SEE IMAGE
     Route: 048
     Dates: start: 20030501, end: 20040801
  2. ACTONEL [Suspect]
     Indication: OSTEOPOROSIS
     Dosage: SEE IMAGE
     Route: 048
     Dates: start: 20041101, end: 20041101
  3. SYNTHROID [Concomitant]
  4. EVISTA [Concomitant]

REACTIONS (3)
  - FEELING ABNORMAL [None]
  - RENAL FAILURE ACUTE [None]
  - THROMBOTIC THROMBOCYTOPENIC PURPURA [None]
